FAERS Safety Report 10653902 (Version 1)
Quarter: 2014Q4

REPORT INFORMATION
  Report Type: Spontaneous
  Country: US (occurrence: US)
  Receive Date: 20141216
  Receipt Date: 20141216
  Transmission Date: 20150529
  Serious: Yes (Other)
  Sender: FDA-Public Use
  Company Number: PHEH2014US024427

PATIENT
  Sex: Male

DRUGS (6)
  1. TEKTURNA HCT [Suspect]
     Active Substance: ALISKIREN HEMIFUMARATE\HYDROCHLOROTHIAZIDE
     Indication: PRODUCT USED FOR UNKNOWN INDICATION
     Dosage: 300/25 MG (300 MG ALIS AND 25 MG HYDR), QD
     Route: 048
  2. TEKTURNA [Suspect]
     Active Substance: ALISKIREN HEMIFUMARATE
     Indication: HYPERTENSION
     Route: 065
  3. AMLODIPINE [Concomitant]
     Active Substance: AMLODIPINE BESYLATE
     Indication: HYPERTENSION
     Route: 065
  4. AZOR (OLMESARTAN MEDOXOMIL/ AMLODIPINE BESILATE) [Concomitant]
     Indication: HYPERTENSION
     Dosage: 10/40 MG (10 MG AMLO AND 40 MG OLME), QD
     Route: 065
  5. BYSTOLIC [Concomitant]
     Active Substance: NEBIVOLOL HYDROCHLORIDE
     Indication: HYPERTENSION
     Route: 065
  6. LOSARTAN [Concomitant]
     Active Substance: LOSARTAN
     Indication: HYPERTENSION
     Route: 065

REACTIONS (9)
  - Glaucoma [Unknown]
  - Diabetic autonomic neuropathy [Unknown]
  - Diabetic vascular disorder [Unknown]
  - Type 2 diabetes mellitus [Unknown]
  - Chronic kidney disease [Unknown]
  - Hyperlipidaemia [Unknown]
  - Cardiac murmur [Unknown]
  - Psoriasis [Unknown]
  - Diabetic nephropathy [Unknown]
